FAERS Safety Report 15135356 (Version 1)
Quarter: 2018Q3

REPORT INFORMATION
  Report Type: Report from Study
  Country: US (occurrence: US)
  Receive Date: 20180712
  Receipt Date: 20180712
  Transmission Date: 20181010
  Serious: Yes (Hospitalization, Other)
  Sender: FDA-Public Use
  Company Number: US-MEDICURE INC.-2051881

PATIENT
  Age: 85 Year
  Sex: Male
  Weight: 104 kg

DRUGS (10)
  1. AGGRASTAT [Suspect]
     Active Substance: TIROFIBAN HYDROCHLORIDE
     Route: 041
     Dates: start: 20170516, end: 20170516
  2. CLOPIDOGREL [Concomitant]
     Active Substance: CLOPIDOGREL BISULFATE
     Route: 048
     Dates: start: 20170516, end: 20170516
  3. HEPARIN [Concomitant]
     Active Substance: HEPARIN SODIUM
     Route: 041
     Dates: start: 20170516, end: 20170516
  4. HEPARIN [Concomitant]
     Active Substance: HEPARIN SODIUM
     Route: 041
     Dates: start: 20170516, end: 20170516
  5. AGGRASTAT [Suspect]
     Active Substance: TIROFIBAN HYDROCHLORIDE
     Indication: ANTIPLATELET THERAPY
     Route: 040
     Dates: start: 20170516, end: 20170516
  6. PACKED RED BLOOD CELLS [Concomitant]
     Active Substance: HUMAN RED BLOOD CELL
     Route: 042
     Dates: start: 20170517, end: 20170517
  7. PACKED RED BLOOD CELLS [Concomitant]
     Active Substance: HUMAN RED BLOOD CELL
     Route: 042
     Dates: start: 20170518, end: 20170518
  8. ASPIRIN. [Concomitant]
     Active Substance: ASPIRIN
     Dates: start: 20170516, end: 20170516
  9. PACKED RED BLOOD CELLS [Concomitant]
     Active Substance: HUMAN RED BLOOD CELL
     Route: 042
     Dates: start: 20170517, end: 20170517
  10. CLOPIDOGREL [Concomitant]
     Active Substance: CLOPIDOGREL BISULFATE
     Route: 048
     Dates: start: 20170516, end: 20170516

REACTIONS (3)
  - Dizziness [Recovered/Resolved]
  - Large intestinal haemorrhage [Recovered/Resolved with Sequelae]
  - Haematochezia [Recovered/Resolved]

NARRATIVE: CASE EVENT DATE: 20170516
